FAERS Safety Report 10305836 (Version 5)
Quarter: 2015Q3

REPORT INFORMATION
  Report Type: Report from Study
  Country: JP (occurrence: JP)
  Receive Date: 20140715
  Receipt Date: 20150901
  Transmission Date: 20151125
  Serious: Yes (Life-Threatening, Hospitalization, Other)
  Sender: FDA-Public Use
  Company Number: JP-AMGEN-JPNCT2014052591

PATIENT
  Age: 77 Year
  Sex: Female
  Weight: 60 kg

DRUGS (12)
  1. TAKEPRON [Concomitant]
     Active Substance: LANSOPRAZOLE
     Indication: PROPHYLAXIS
     Dosage: UNK
     Route: 048
  2. THYRADIN S [Concomitant]
     Active Substance: LEVOTHYROXINE SODIUM
     Indication: AUTOIMMUNE THYROIDITIS
     Dosage: UNK
     Route: 048
  3. MAGMITT [Concomitant]
     Active Substance: MAGNESIUM OXIDE
     Indication: CONSTIPATION
     Dosage: UNK
     Route: 048
  4. PREDNISOLONE. [Suspect]
     Active Substance: PREDNISOLONE
     Indication: IMMUNE THROMBOCYTOPENIC PURPURA
     Dosage: 30 MG, UNK
     Route: 048
     Dates: start: 20131010
  5. KENKETU GLOVENIN-I [Concomitant]
     Active Substance: HUMAN IMMUNOGLOBULIN G
     Indication: IMMUNE THROMBOCYTOPENIC PURPURA
     Dosage: 20 G, UNK
     Route: 065
     Dates: start: 20131025, end: 20131029
  6. FLUCONAZOLE. [Concomitant]
     Active Substance: FLUCONAZOLE
     Indication: PROPHYLAXIS
     Dosage: UNK
     Route: 048
  7. BAKTAR [Concomitant]
     Active Substance: SULFAMETHOXAZOLE\TRIMETHOPRIM
     Indication: PROPHYLAXIS
     Dosage: UNK
     Route: 048
  8. ROMIPLOSTIM - KHK [Suspect]
     Active Substance: ROMIPLOSTIM
     Indication: IMMUNE THROMBOCYTOPENIC PURPURA
     Dosage: 1 MUG/KG, QD
     Route: 058
     Dates: start: 20131023, end: 20140320
  9. LECICARBON                         /05510501/ [Concomitant]
     Indication: CONSTIPATION
     Dosage: UNK
     Route: 054
  10. FORSENID [Concomitant]
     Indication: CONSTIPATION
     Dosage: UNK
     Route: 048
  11. SOLU-MEDROL [Suspect]
     Active Substance: METHYLPREDNISOLONE SODIUM SUCCINATE
     Indication: IMMUNE THROMBOCYTOPENIC PURPURA
     Dosage: 500 MG, UNK
     Route: 065
     Dates: start: 20131014, end: 20131016
  12. FORSENID                           /00571901/ [Concomitant]
     Indication: CONSTIPATION
     Dosage: UNK
     Route: 048

REACTIONS (8)
  - Deep vein thrombosis [Recovering/Resolving]
  - Hypofibrinogenaemia [Recovered/Resolved]
  - Insomnia [Recovered/Resolved]
  - Cerebral haemorrhage [Recovered/Resolved]
  - Subdural haematoma [Recovered/Resolved]
  - Muscular weakness [Not Recovered/Not Resolved]
  - Leukocytosis [Recovered/Resolved]
  - Klebsiella sepsis [Recovered/Resolved]

NARRATIVE: CASE EVENT DATE: 20131025
